FAERS Safety Report 8427271-9 (Version None)
Quarter: 2012Q2

REPORT INFORMATION
  Report Type: 
  Country: None (occurrence: None)
  Receive Date: 20120611
  Receipt Date: 20120604
  Transmission Date: 20120825
  Serious: Yes (Death, Hospitalization)
  Sender: FDA-Public Use
  Company Number: US-GLAXOSMITHKLINE-A0980650A

PATIENT
  Age: 39 Year
  Sex: Female

DRUGS (1)
  1. FLOLAN [Suspect]
     Indication: PRODUCT USED FOR UNKNOWN INDICATION
     Dosage: 22.3NGKM SEE DOSAGE TEXT
     Route: 065
     Dates: start: 20030219

REACTIONS (3)
  - RESPIRATORY ARREST [None]
  - HAEMOPTYSIS [None]
  - DEATH [None]
